FAERS Safety Report 9292904 (Version 1)
Quarter: 2013Q2

REPORT INFORMATION
  Report Type: Report from Study
  Country: CZ (occurrence: CZ)
  Receive Date: 20130516
  Receipt Date: 20130516
  Transmission Date: 20140414
  Serious: Yes (Hospitalization)
  Sender: FDA-Public Use
  Company Number: CZ-PFIZER INC-2013149202

PATIENT
  Sex: Male

DRUGS (1)
  1. SUTENT [Suspect]
     Indication: RENAL CELL CARCINOMA
     Dosage: 50 MG, CYCLIC
     Route: 048
     Dates: start: 200902, end: 2011

REACTIONS (8)
  - Phlebitis [Unknown]
  - Decreased appetite [Unknown]
  - Fatigue [Unknown]
  - Skin atrophy [Unknown]
  - Hypothyroidism [Unknown]
  - Mucosal inflammation [Unknown]
  - Hair colour changes [Unknown]
  - Erythema [Unknown]
